FAERS Safety Report 8420356-2 (Version None)
Quarter: 2012Q2

REPORT INFORMATION
  Report Type: 
  Country: None (occurrence: None)
  Receive Date: 20120607
  Receipt Date: 20120529
  Transmission Date: 20120825
  Serious: Yes (Other)
  Sender: FDA-Public Use
  Company Number: US-GILEAD-2012-0055303

PATIENT
  Sex: Female

DRUGS (4)
  1. EMTRICITABINE [Suspect]
     Dosage: UNK
     Dates: start: 20060518, end: 20080514
  2. EMTRICITABINE [Suspect]
     Indication: HIV INFECTION
     Dosage: UNK
     Dates: start: 20060518
  3. EMTRICITABINE/TENOFOVIR DISOPROXIL FUMARATE [Suspect]
     Indication: HIV INFECTION
     Dosage: UNK
     Dates: start: 20080515, end: 20090708
  4. EMTRICITABINE/TENOFOVIR DISOPROXIL FUMARATE [Suspect]
     Dosage: UNK
     Dates: start: 20090712

REACTIONS (3)
  - PREGNANCY [None]
  - ABORTION SPONTANEOUS [None]
  - MATERNAL EXPOSURE DURING PREGNANCY [None]
